FAERS Safety Report 5056107-1 (Version None)
Quarter: 2006Q3

REPORT INFORMATION
  Report Type: 
  Country: None (occurrence: None)
  Receive Date: 20060720
  Receipt Date: 20060707
  Transmission Date: 20061208
  Serious: Yes (Life-Threatening, Congenital Anomaly)
  Sender: FDA-Public Use
  Company Number: JP-MERCK-0607USA02740

PATIENT
  Age: 64 Year
  Sex: Male

DRUGS (5)
  1. PEPCID RPD [Suspect]
     Indication: GASTRITIS EROSIVE
     Route: 048
     Dates: start: 20041209, end: 20050607
  2. PURSENNID [Concomitant]
     Indication: CONSTIPATION
     Route: 048
  3. CALCIUM CARBONATE [Concomitant]
     Indication: HYPERPHOSPHATAEMIA
     Route: 048
  4. RHYTHMY [Concomitant]
     Indication: INSOMNIA
     Route: 048
  5. PLETAL [Concomitant]
     Indication: CEREBRAL INFARCTION
     Route: 048

REACTIONS (5)
  - ADVERSE EVENT [None]
  - ATRIOVENTRICULAR BLOCK THIRD DEGREE [None]
  - BRADYCARDIA [None]
  - ELECTROCARDIOGRAM QT CORRECTED INTERVAL PROLONGED [None]
  - VENTRICULAR TACHYCARDIA [None]
